FAERS Safety Report 6314687-X (Version None)
Quarter: 2009Q3

REPORT INFORMATION
  Report Type: 
  Country: None (occurrence: None)
  Receive Date: 20090819
  Receipt Date: 20090812
  Transmission Date: 20100115
  Serious: Yes (Hospitalization, Other)
  Sender: FDA-Public Use
  Company Number: GB-JNJFOC-20060203456

PATIENT
  Sex: Female

DRUGS (5)
  1. RISPERDAL [Suspect]
     Route: 048
  2. RISPERDAL [Suspect]
     Route: 048
  3. RISPERDAL [Suspect]
     Indication: PSYCHOTIC DISORDER
     Route: 048
  4. SEROQUEL [Suspect]
     Indication: DRUG USE FOR UNKNOWN INDICATION
  5. LEVOTHYROXINE SODIUM [Concomitant]

REACTIONS (6)
  - HEPATITIS [None]
  - HEPATOMEGALY [None]
  - JAUNDICE [None]
  - MANIA [None]
  - PRURITUS [None]
  - RASH [None]
